FAERS Safety Report 7627151-2 (Version None)
Quarter: 2011Q3

REPORT INFORMATION
  Report Type: 
  Country: None (occurrence: None)
  Receive Date: 20110721
  Receipt Date: 20110614
  Transmission Date: 20111222
  Serious: No
  Sender: FDA-Public Use
  Company Number: US-BAYER-2011-051403

PATIENT
  Age: 66 Year

DRUGS (11)
  1. HYDROCHLOROTHIAZIDE [Concomitant]
  2. BETASERON [Suspect]
     Dosage: 0.25 MG, QOD
     Route: 058
  3. NEURONTIN [Concomitant]
     Dosage: 300 MG, UNK
  4. NORPACE [Concomitant]
     Dosage: 100 MG, UNK
  5. ASCORBIC ACID [Concomitant]
  6. LIPITOR [Concomitant]
     Dosage: 40 MG, UNK
     Route: 048
  7. LISINOPRIL [Concomitant]
     Dosage: 20 MG, UNK
  8. CALCIUM CARBONATE [Concomitant]
  9. VITAMIN D [Concomitant]
     Dosage: 1000 U, UNK
  10. VITAMIN B COMPLEX CAP [Concomitant]
  11. MULTI-VITAMIN [Concomitant]

REACTIONS (1)
  - CHILLS [None]
